FAERS Safety Report 21298669 (Version 1)
Quarter: 2022Q3

REPORT INFORMATION
  Report Type: Spontaneous
  Country: US (occurrence: None)
  Receive Date: 20220905
  Receipt Date: 20220905
  Transmission Date: 20221026
  Serious: Yes (Hospitalization)
  Sender: FDA-Public Use
  Company Number: None

PATIENT
  Age: 76 Year
  Sex: Male

DRUGS (1)
  1. APIXABAN [Suspect]
     Active Substance: APIXABAN
     Indication: Cerebrovascular accident
     Dosage: 1 TAB BID PO
     Route: 048
     Dates: start: 20210123, end: 20211129

REACTIONS (4)
  - Cerebrovascular accident [None]
  - Treatment failure [None]
  - Blindness [None]
  - Transient ischaemic attack [None]

NARRATIVE: CASE EVENT DATE: 20220624
